FAERS Safety Report 7392439-X (Version None)
Quarter: 2011Q1

REPORT INFORMATION
  Report Type: 
  Country: None (occurrence: None)
  Receive Date: 20110330
  Receipt Date: 20110330
  Transmission Date: 20110831
  Serious: No
  Sender: FDA-Public Use
  Company Number: None

PATIENT
  Sex: Male
  Weight: 29.9 kg

DRUGS (3)
  1. ETOPOSIDE [Suspect]
     Dosage: 1360 MG
  2. MELPHALAN [Suspect]
     Dosage: 210 MG
  3. CARBOPLATIN [Suspect]
     Dosage: 1700 MG

REACTIONS (9)
  - BLOOD CREATININE INCREASED [None]
  - DISSEMINATED INTRAVASCULAR COAGULATION [None]
  - SOMNOLENCE [None]
  - HAEMORRHAGE [None]
  - MULTI-ORGAN FAILURE [None]
  - MENTAL STATUS CHANGES [None]
  - CONVULSION [None]
  - RESPIRATORY DISTRESS [None]
  - BLOOD BILIRUBIN INCREASED [None]
